FAERS Safety Report 16590529 (Version 1)
Quarter: 2019Q3

REPORT INFORMATION
  Report Type: Spontaneous
  Country: US (occurrence: US)
  Receive Date: 20190604
  Receipt Date: 20190604
  Transmission Date: 20191004
  Serious: Yes (Other)
  Sender: FDA-Public Use
  Company Number: None

PATIENT
  Age: 65 Year
  Sex: Female

DRUGS (1)
  1. IBRANCE [Suspect]
     Active Substance: PALBOCICLIB
     Indication: BREAST CANCER METASTATIC
     Dosage: ?          OTHER ROUTE:ORAL X 21 DAYS, OFF 7 DAYS??8/24/2019 TO 5/28/2019
     Route: 048
     Dates: end: 20190528

REACTIONS (1)
  - White blood cell count decreased [None]
